FAERS Safety Report 16352008 (Version 1)
Quarter: 2019Q3

REPORT INFORMATION
  Report Type: Spontaneous
  Country: US (occurrence: US)
  Receive Date: 20190523
  Receipt Date: 20190523
  Transmission Date: 20191004
  Serious: Yes (Hospitalization)
  Sender: FDA-Public Use
  Company Number: None

PATIENT
  Age: 36 Year
  Sex: Female
  Weight: 102 kg

DRUGS (1)
  1. INJECTAFER [Suspect]
     Active Substance: FERRIC CARBOXYMALTOSE
     Indication: IRON DEFICIENCY
     Dosage: ?          OTHER FREQUENCY:ONCE;?
     Route: 042
     Dates: start: 20190318, end: 20190318

REACTIONS (7)
  - Chest pain [None]
  - Chest discomfort [None]
  - Dyspnoea [None]
  - Erythema [None]
  - Pharyngeal swelling [None]
  - Abdominal pain upper [None]
  - Nausea [None]

NARRATIVE: CASE EVENT DATE: 20190318
